FAERS Safety Report 6040747-7 (Version None)
Quarter: 2009Q1

REPORT INFORMATION
  Report Type: 
  Country: None (occurrence: None)
  Receive Date: 20090116
  Receipt Date: 20080519
  Transmission Date: 20090719
  Serious: No
  Sender: FDA-Public Use
  Company Number: US-BRISTOL-MYERS SQUIBB COMPANY-14196372

PATIENT
  Age: 33 Year
  Sex: Female

DRUGS (2)
  1. ABILIFY [Suspect]
     Dosage: STOPPED SOMETIME AND RESTARTED ON 17APR08.
     Dates: start: 20070401
  2. ZOLOFT [Concomitant]

REACTIONS (1)
  - PREGNANCY [None]
